FAERS Safety Report 9485947 (Version 1)
Quarter: 2013Q3

REPORT INFORMATION
  Report Type: Spontaneous
  Country: US (occurrence: US)
  Receive Date: 20130829
  Receipt Date: 20130829
  Transmission Date: 20140515
  Serious: Yes (Hospitalization)
  Sender: FDA-Public Use
  Company Number: US-MYLANLABS-2013S1018795

PATIENT
  Sex: Female

DRUGS (1)
  1. LEVOTHYROXINE [Suspect]

REACTIONS (2)
  - Hypersensitivity [Unknown]
  - Laboratory test abnormal [Unknown]
